FAERS Safety Report 15069387 (Version 1)
Quarter: 2018Q2

REPORT INFORMATION
  Report Type: Spontaneous
  Country: US (occurrence: US)
  Receive Date: 20180626
  Receipt Date: 20180626
  Transmission Date: 20180711
  Serious: No
  Sender: FDA-Public Use
  Company Number: US-AMGEN-USASP2010006310

PATIENT
  Age: 48 Year
  Sex: Female

DRUGS (4)
  1. PACLITAXEL. [Concomitant]
     Active Substance: PACLITAXEL
     Dosage: UNK
     Dates: start: 20100722
  2. NEULASTA [Suspect]
     Active Substance: PEGFILGRASTIM
     Indication: CHEMOTHERAPY
     Dosage: 6 MG, AFTER CHEMO
     Dates: start: 20100723
  3. ANTIEMETICS AND ANTINAUSEANTS [Concomitant]
     Active Substance: UNSPECIFIED INGREDIENT
  4. CARBOPLATIN. [Concomitant]
     Active Substance: CARBOPLATIN
     Dosage: UNK
     Dates: start: 20100722

REACTIONS (1)
  - Leukocytosis [Unknown]

NARRATIVE: CASE EVENT DATE: 20100812
